FAERS Safety Report 4590005-2 (Version None)
Quarter: 2005Q1

REPORT INFORMATION
  Report Type: 
  Country: None (occurrence: None)
  Receive Date: 20050218
  Receipt Date: 20050218
  Transmission Date: 20050727
  Serious: Yes (Other)
  Sender: FDA-Public Use
  Company Number: None

PATIENT
  Age: 78 Year
  Sex: Female

DRUGS (1)
  1. GABAPENTIN  100 MG  TEVA [Suspect]
     Indication: PAIN MANAGEMENT
     Dosage: 100 MG  NIGHTLY ORAL
     Route: 048
     Dates: start: 20050201, end: 20050215

REACTIONS (3)
  - DRUG EFFECT DECREASED [None]
  - INSOMNIA [None]
  - PHARMACEUTICAL PRODUCT COMPLAINT [None]
